FAERS Safety Report 23605507 (Version 1)
Quarter: 2024Q1

REPORT INFORMATION
  Report Type: Spontaneous
  Country: US (occurrence: US)
  Receive Date: 20240307
  Receipt Date: 20240307
  Transmission Date: 20240410
  Serious: No
  Sender: FDA-Public Use
  Company Number: US-REGENERON PHARMACEUTICALS, INC.-2024-015463

PATIENT
  Sex: Female

DRUGS (2)
  1. EYLEA [Suspect]
     Active Substance: AFLIBERCEPT
     Indication: Neovascular age-related macular degeneration
     Dosage: UNK, INTO LEFT EYE, FORMULATION: UNKNOWN
  2. EYLEA HD [Suspect]
     Active Substance: AFLIBERCEPT
     Indication: Neovascular age-related macular degeneration
     Dosage: 8 MG, ONCE, INTO LEFT EYE, FORMULATION: HD VIAL
     Dates: start: 20231121, end: 20231121

REACTIONS (2)
  - Amnesia [Unknown]
  - Confusional state [Unknown]

NARRATIVE: CASE EVENT DATE: 20231127
